FAERS Safety Report 14698576 (Version 2)
Quarter: 2018Q1

REPORT INFORMATION
  Report Type: Spontaneous
  Country: US (occurrence: US)
  Receive Date: 20180330
  Receipt Date: 20180330
  Transmission Date: 20180509
  Serious: Yes (Death, Other)
  Sender: FDA-Public Use
  Company Number: US-UNITED THERAPEUTICS-UNT-2018-004164

PATIENT
  Age: 86 Year
  Sex: Female
  Weight: 82.99 kg

DRUGS (5)
  1. REMODULIN [Suspect]
     Active Substance: TREPROSTINIL
     Indication: PULMONARY ARTERIAL HYPERTENSION
     Dosage: 0.021 ?G/KG, CONTINUING
     Route: 041
     Dates: start: 201803, end: 201803
  2. ADEMPAS [Concomitant]
     Active Substance: RIOCIGUAT
     Indication: PRODUCT USED FOR UNKNOWN INDICATION
     Route: 065
  3. DILTIAZEM. [Concomitant]
     Active Substance: DILTIAZEM
     Indication: PRODUCT USED FOR UNKNOWN INDICATION
     Route: 065
  4. TRACLEER [Concomitant]
     Active Substance: BOSENTAN
     Indication: PRODUCT USED FOR UNKNOWN INDICATION
     Route: 065
  5. TYVASO [Suspect]
     Active Substance: TREPROSTINIL
     Indication: PULMONARY ARTERIAL HYPERTENSION
     Dosage: 18-54 ?G, QID
     Dates: start: 20160725

REACTIONS (11)
  - Gait disturbance [Unknown]
  - Nausea [Unknown]
  - Pulmonary arterial hypertension [Fatal]
  - Dysarthria [Unknown]
  - Lethargy [Unknown]
  - Unresponsive to stimuli [Unknown]
  - Incoherent [Unknown]
  - Dizziness [Unknown]
  - Renal impairment [Unknown]
  - Decreased appetite [Unknown]
  - Hypotension [Unknown]

NARRATIVE: CASE EVENT DATE: 201803
